FAERS Safety Report 17293735 (Version 1)
Quarter: 2020Q1

REPORT INFORMATION
  Report Type: Spontaneous
  Country: CA (occurrence: CA)
  Receive Date: 20200121
  Receipt Date: 20200121
  Transmission Date: 20200409
  Serious: Yes (Other)
  Sender: FDA-Public Use
  Company Number: CA-PFIZER INC-2020023062

PATIENT
  Age: 24 Year
  Sex: Female

DRUGS (4)
  1. SULFASALAZINE. [Suspect]
     Active Substance: SULFASALAZINE
     Dosage: 8 DF, AS NEEDED (4 TABLETS IN AM AND 4 TABLETS IN PRN)
     Route: 048
  2. TYLENOL [Concomitant]
     Active Substance: ACETAMINOPHEN
     Dosage: UNK UNK, AS NEEDED
     Route: 065
  3. LINESSA 21 [Concomitant]
     Active Substance: DESOGESTREL\ETHINYL ESTRADIOL
     Indication: CONTRACEPTION
     Dosage: UNK
     Route: 065
  4. ENTOCORT [Concomitant]
     Active Substance: BUDESONIDE
     Dosage: 3 DF, DAILY
     Route: 065

REACTIONS (5)
  - Abdominal pain [Unknown]
  - Condition aggravated [Unknown]
  - Haematochezia [Unknown]
  - Diarrhoea [Unknown]
  - Dizziness [Unknown]
